FAERS Safety Report 7434179-4 (Version None)
Quarter: 2011Q2

REPORT INFORMATION
  Report Type: 
  Country: None (occurrence: None)
  Receive Date: 20110425
  Receipt Date: 20110418
  Transmission Date: 20111010
  Serious: No
  Sender: FDA-Public Use
  Company Number: US-PFIZER INC-2011085326

PATIENT
  Sex: Female

DRUGS (2)
  1. ZOLOFT [Suspect]
     Indication: ANXIETY
     Dosage: UNK
  2. ZOLOFT [Suspect]
     Indication: PANIC ATTACK
     Dosage: 200 MG, UNK

REACTIONS (3)
  - ANXIETY [None]
  - PANIC ATTACK [None]
  - DRUG INEFFECTIVE [None]
